FAERS Safety Report 16134656 (Version 1)
Quarter: 2019Q1

REPORT INFORMATION
  Report Type: Report from Study
  Country: CA (occurrence: CA)
  Receive Date: 20190329
  Receipt Date: 20190329
  Transmission Date: 20190418
  Serious: Yes (Hospitalization, Other)
  Sender: FDA-Public Use
  Company Number: CA-TAIHO ONCOLOGY  INC-EU-2019-00930

PATIENT
  Sex: Female
  Weight: 66 kg

DRUGS (1)
  1. LONSURF [Suspect]
     Active Substance: TIPIRACIL HYDROCHLORIDE\TRIFLURIDINE
     Indication: COLORECTAL CANCER METASTATIC
     Dosage: CURRENT CYCLE 3 DELAYED, STARTED ON 18/MAR/2019.
     Route: 048

REACTIONS (8)
  - Small intestinal perforation [Unknown]
  - Surgery [Unknown]
  - Neutrophil count abnormal [Unknown]
  - Fatigue [Unknown]
  - White blood cell count decreased [Unknown]
  - Gastric ulcer [Unknown]
  - Pulmonary oedema [Unknown]
  - Diarrhoea [Unknown]
